FAERS Safety Report 25556557 (Version 1)
Quarter: 2025Q3

REPORT INFORMATION
  Report Type: Spontaneous
  Country: US (occurrence: US)
  Receive Date: 20250715
  Receipt Date: 20250715
  Transmission Date: 20251020
  Serious: No
  Sender: NOVO NORDISK
  Company Number: US-NOVOPROD-1279078

PATIENT
  Age: 63 Year
  Sex: Male

DRUGS (1)
  1. OZEMPIC [Suspect]
     Active Substance: SEMAGLUTIDE
     Indication: Type 2 diabetes mellitus
     Route: 058

REACTIONS (8)
  - Decreased appetite [Unknown]
  - Abdominal distension [Unknown]
  - Injection site bruising [Unknown]
  - Injection site haemorrhage [Unknown]
  - Diarrhoea [Unknown]
  - Constipation [Unknown]
  - Incorrect dose administered [Unknown]
  - Product label confusion [Unknown]
